FAERS Safety Report 23359759 (Version 1)
Quarter: 2024Q1

REPORT INFORMATION
  Report Type: Spontaneous
  Country: CN (occurrence: None)
  Receive Date: 20240103
  Receipt Date: 20240103
  Transmission Date: 20240410
  Serious: Yes (Other)
  Sender: FDA-Public Use
  Company Number: CN-ROCHE-3481899

PATIENT

DRUGS (6)
  1. POLIVY [Suspect]
     Active Substance: POLATUZUMAB VEDOTIN-PIIQ
     Indication: B-cell lymphoma
     Route: 065
  2. POLIVY [Suspect]
     Active Substance: POLATUZUMAB VEDOTIN-PIIQ
     Indication: Diffuse large B-cell lymphoma
  3. POLIVY [Suspect]
     Active Substance: POLATUZUMAB VEDOTIN-PIIQ
     Indication: Mantle cell lymphoma refractory
  4. MOSUNETUZUMAB [Concomitant]
     Active Substance: MOSUNETUZUMAB
     Indication: B-cell lymphoma
  5. MOSUNETUZUMAB [Concomitant]
     Active Substance: MOSUNETUZUMAB
     Indication: Diffuse large B-cell lymphoma
  6. MOSUNETUZUMAB [Concomitant]
     Active Substance: MOSUNETUZUMAB
     Indication: Mantle cell lymphoma refractory

REACTIONS (5)
  - Neutrophil count decreased [Unknown]
  - Fatigue [Unknown]
  - Nausea [Unknown]
  - Cytokine release syndrome [Unknown]
  - Injection site reaction [Unknown]
